FAERS Safety Report 19119538 (Version 3)
Quarter: 2024Q3

REPORT INFORMATION
  Report Type: Spontaneous
  Country: FR (occurrence: FR)
  Receive Date: 20210412
  Receipt Date: 20240925
  Transmission Date: 20241017
  Serious: Yes (Other)
  Sender: AUROBINDO
  Company Number: FR-SEATTLE GENETICS-2021SGN01773

PATIENT
  Age: 45 Year
  Sex: Female
  Weight: 85 kg

DRUGS (3)
  1. CAPECITABINE [Suspect]
     Active Substance: CAPECITABINE
     Indication: HER2 positive breast cancer
     Dosage: 1000 MILLIGRAM/SQ. METER, TWO TIMES A DAY (2000 MG/M2 ONCE A DAY)
     Route: 048
  2. TRASTUZUMAB [Suspect]
     Active Substance: TRASTUZUMAB
     Indication: HER2 positive breast cancer
     Dosage: 600 MILLIGRAM PER 3 WEEKS
     Route: 058
  3. TUCATINIB [Suspect]
     Active Substance: TUCATINIB
     Indication: HER2 positive breast cancer
     Dosage: 300 MILLIGRAM, TWO TIMES A DAY (600 MILLIGRAM, ONCE A DAY, 300 MILLIGR AM, TWO TIMES A DAY (600 MILL
     Route: 048
     Dates: start: 20210107, end: 20210221

REACTIONS (1)
  - Hepatic cytolysis [Recovering/Resolving]

NARRATIVE: CASE EVENT DATE: 20210222
